FAERS Safety Report 24525524 (Version 1)
Quarter: 2024Q4

REPORT INFORMATION
  Report Type: Spontaneous
  Country: US (occurrence: US)
  Receive Date: 20241020
  Receipt Date: 20241020
  Transmission Date: 20250115
  Serious: Yes (Other)
  Sender: DR REDDYS
  Company Number: US-DRL-USA-LIT/USA/24/0015380

PATIENT
  Age: 68 Year
  Sex: Male

DRUGS (5)
  1. LEVETIRACETAM [Suspect]
     Active Substance: LEVETIRACETAM
     Indication: Myoclonus
  2. BACLOFEN [Concomitant]
     Active Substance: BACLOFEN
     Indication: Myoclonus
  3. CLONAZEPAM [Concomitant]
     Active Substance: CLONAZEPAM
     Indication: Myoclonus
  4. ZONISAMIDE [Concomitant]
     Active Substance: ZONISAMIDE
     Indication: Myoclonus
  5. RITUXIMAB [Concomitant]
     Active Substance: RITUXIMAB
     Indication: Nervous system disorder

REACTIONS (1)
  - Drug ineffective for unapproved indication [Unknown]
